FAERS Safety Report 6699230-8 (Version None)
Quarter: 2010Q2

REPORT INFORMATION
  Report Type: 
  Country: None (occurrence: None)
  Receive Date: 20100427
  Receipt Date: 20100415
  Transmission Date: 20101027
  Serious: Yes (Hospitalization, Other)
  Sender: FDA-Public Use
  Company Number: US-PFIZER INC-2010048589

PATIENT
  Sex: Female

DRUGS (2)
  1. ZOLOFT [Suspect]
     Dosage: UNK, DAILY
  2. CYMBALTA [Suspect]
     Dosage: UNK
     Dates: start: 20100101

REACTIONS (15)
  - ASCITES [None]
  - BREAST CANCER [None]
  - CHROMATURIA [None]
  - EPISTAXIS [None]
  - HEART RATE INCREASED [None]
  - HEPATIC PAIN [None]
  - INTESTINAL FUNCTIONAL DISORDER [None]
  - METASTASES TO LIVER [None]
  - METASTASES TO PANCREAS [None]
  - NERVE INJURY [None]
  - OROPHARYNGEAL PAIN [None]
  - PAIN [None]
  - PALPITATIONS [None]
  - PERIPHERAL COLDNESS [None]
  - RHINORRHOEA [None]
